FAERS Safety Report 13708353 (Version 1)
Quarter: 2017Q2

REPORT INFORMATION
  Report Type: Spontaneous
  Country: US (occurrence: US)
  Receive Date: 20170630
  Receipt Date: 20170630
  Transmission Date: 20170830
  Serious: Yes (Death, Hospitalization, Other)
  Sender: FDA-Public Use
  Company Number: US-JNJFOC-20170605897

PATIENT
  Age: 41 Year
  Sex: Male
  Weight: 149.69 kg

DRUGS (1)
  1. DARZALEX [Suspect]
     Active Substance: DARATUMUMAB
     Indication: PLASMA CELL MYELOMA
     Route: 042
     Dates: start: 20160419

REACTIONS (8)
  - Diabetes mellitus inadequate control [Unknown]
  - Central nervous system infection [Unknown]
  - Jaundice hepatocellular [Unknown]
  - Hypoxic-ischaemic encephalopathy [Unknown]
  - Sepsis [Fatal]
  - Tumour pain [Unknown]
  - Acute kidney injury [Unknown]
  - Fluid overload [Unknown]

NARRATIVE: CASE EVENT DATE: 20161006
